FAERS Safety Report 5039078-3 (Version None)
Quarter: 2006Q2

REPORT INFORMATION
  Report Type: 
  Country: None (occurrence: None)
  Receive Date: 20060629
  Receipt Date: 20060619
  Transmission Date: 20061013
  Serious: Yes (Death)
  Sender: FDA-Public Use
  Company Number: US-AMGEN-US183510

PATIENT
  Sex: Male

DRUGS (6)
  1. ARANESP [Suspect]
     Indication: ANAEMIA OF MALIGNANT DISEASE
     Dates: end: 20060612
  2. METHOTREXATE [Concomitant]
  3. LASIX [Concomitant]
  4. POTASSIUM CHLORIDE [Concomitant]
  5. PLATELETS [Concomitant]
     Route: 042
  6. RED BLOOD CELLS [Concomitant]
     Route: 042

REACTIONS (5)
  - ARRHYTHMIA [None]
  - BLOOD PRESSURE INCREASED [None]
  - FLUID OVERLOAD [None]
  - LOSS OF CONSCIOUSNESS [None]
  - WEIGHT INCREASED [None]
